FAERS Safety Report 15449105 (Version 4)
Quarter: 2018Q4

REPORT INFORMATION
  Report Type: Report from Study
  Country: BE (occurrence: BE)
  Receive Date: 20180930
  Receipt Date: 20181109
  Transmission Date: 20190204
  Serious: Yes (Death)
  Sender: FDA-Public Use
  Company Number: BE-BEH-2018095149

PATIENT
  Age: 84 Year
  Sex: Male
  Weight: 90 kg

DRUGS (2)
  1. HIZENTRA [Suspect]
     Active Substance: HUMAN IMMUNOGLOBULIN G
     Dosage: 8 G, UNK
     Route: 058
     Dates: start: 20180617, end: 20180617
  2. HIZENTRA [Suspect]
     Active Substance: HUMAN IMMUNOGLOBULIN G
     Indication: HYPOGAMMAGLOBULINAEMIA
     Dosage: 8 G, QW; INFUSION RATE: 20 ML/HOUR
     Route: 058
     Dates: start: 20100419, end: 20180811

REACTIONS (2)
  - Leukaemia [Fatal]
  - Staphylococcal infection [Fatal]
